FAERS Safety Report 14261956 (Version 4)
Quarter: 2025Q1

REPORT INFORMATION
  Report Type: Other
  Country: CA (occurrence: CA)
  Receive Date: 20171208
  Receipt Date: 20250220
  Transmission Date: 20250408
  Serious: Yes (Death, Other)
  Sender: APOTEX
  Company Number: CA-APOTEX-2017AP022083

PATIENT
  Age: 57 Year
  Sex: Female

DRUGS (2)
  1. ANASTROZOLE [Suspect]
     Active Substance: ANASTROZOLE
     Indication: Breast cancer female
     Route: 048
  2. AFINITOR [Suspect]
     Active Substance: EVEROLIMUS
     Indication: Breast cancer female
     Route: 048

REACTIONS (5)
  - Death [Fatal]
  - Breast cancer [Fatal]
  - Therapeutic response decreased [Fatal]
  - Malignant neoplasm progression [Fatal]
  - Disease progression [Unknown]
